FAERS Safety Report 12165545 (Version 2)
Quarter: 2021Q4

REPORT INFORMATION
  Report Type: Spontaneous
  Country: US (occurrence: US)
  Receive Date: 20160309
  Receipt Date: 20211216
  Transmission Date: 20220303
  Serious: Yes (Other)
  Sender: FDA-Public Use
  Company Number: UBC18060, UBC18540, UBC19625, UBC24554

PATIENT
  Age: 69 Year
  Sex: Female

DRUGS (38)
  1. GATTEX [Suspect]
     Active Substance: TEDUGLUTIDE\WATER
     Indication: Short-bowel syndrome
     Dosage: 0.24 MILLILITER, QD
     Route: 058
     Dates: start: 20140317
  2. GATTEX [Suspect]
     Active Substance: TEDUGLUTIDE\WATER
     Indication: Short-bowel syndrome
     Dosage: 0.24 MILLILITER, QD
     Route: 058
     Dates: start: 20140317
  3. GATTEX [Suspect]
     Active Substance: TEDUGLUTIDE\WATER
     Indication: Short-bowel syndrome
     Dosage: 0.24 MILLILITER, QD
     Route: 058
     Dates: start: 20140317
  4. GATTEX [Suspect]
     Active Substance: TEDUGLUTIDE\WATER
     Indication: Short-bowel syndrome
     Dosage: 0.24 MILLILITER, QD
     Route: 058
     Dates: start: 20140317
  5. GATTEX [Suspect]
     Active Substance: TEDUGLUTIDE\WATER
     Indication: Crohn^s disease
     Dosage: 24 MILLIGRAM, QD
     Route: 058
  6. GATTEX [Suspect]
     Active Substance: TEDUGLUTIDE\WATER
     Indication: Crohn^s disease
     Dosage: 24 MILLIGRAM, QD
     Route: 058
  7. GATTEX [Suspect]
     Active Substance: TEDUGLUTIDE\WATER
     Indication: Crohn^s disease
     Dosage: 24 MILLIGRAM, QD
     Route: 058
  8. GATTEX [Suspect]
     Active Substance: TEDUGLUTIDE\WATER
     Indication: Crohn^s disease
     Dosage: 24 MILLIGRAM, QD
     Route: 058
  9. Boniva injection [Concomitant]
     Indication: Osteoporosis
     Dosage: STREN/VOLUM: 1 INJECTION|FREQU: EVERY 3 MONTHS
  10. CIMZIA [Concomitant]
     Active Substance: CERTOLIZUMAB PEGOL
     Indication: Crohn^s disease
     Dosage: STREN/VOLUM: 400 MG|FREQU: EVERY 4 WEEKS
  11. Cyanocobalamin (B-12) injection [Concomitant]
     Indication: Short-bowel syndrome
     Dosage: STREN/VOLUM: 1000 MCG|FREQU: EVERY 2 WEEKS
  12. Cyanocobalamin (B-12) injection [Concomitant]
     Indication: Crohn^s disease
     Dosage: STREN/VOLUM: 1000 MCG|FREQU: EVERY 2 WEEKS
  13. Colecalciferol d3 [Concomitant]
     Indication: Vitamin supplementation
     Dosage: STREN/VOLUM: 10,000   IU|FREQU: ONCE A DAY
  14. PRASTERONE [Concomitant]
     Active Substance: PRASTERONE
     Indication: Prophylaxis
     Dosage: STREN/VOLUM: 5 MG|FREQU: ONCE A DAY
  15. GLUTAMINE [Concomitant]
     Active Substance: GLUTAMINE
     Indication: Vitamin supplementation
     Dosage: STREN/VOLUM: 4 GRAMS|FREQU: TWICE A DAY (POWDER)
  16. LUTEIN [Concomitant]
     Active Substance: LUTEIN
     Indication: Vitamin supplementation
     Dosage: STREN/VOLUM: 20 MG|FREQU: ONCE A DAY
  17. Magnesium infusion [Concomitant]
     Indication: Short-bowel syndrome
     Dosage: STREN/VOLUM: 4 MG|FREQU: EVERY 4 WEEKS
  18. Magnesium infusion [Concomitant]
     Indication: Mineral supplementation
     Dosage: STREN/VOLUM: 4 MG|FREQU: EVERY 4 WEEKS
  19. PREDNISONE [Concomitant]
     Active Substance: PREDNISONE
     Indication: Short-bowel syndrome
     Dosage: STREN/VOLUM: 1000 MCG|FREQU: EVERY 2 WEEKS
  20. PREDNISONE [Concomitant]
     Active Substance: PREDNISONE
     Indication: Crohn^s disease
     Dosage: STREN/VOLUM: 1000 MCG|FREQU: EVERY 2 WEEKS
  21. PROBIOTICS NOS [Concomitant]
     Active Substance: PROBIOTICS NOS
     Indication: Probiotic therapy
     Dosage: STREN/VOLUM: 1 - 2 TABLETS|FREQU: ONCE A DAY
  22. PROGESTERONE [Concomitant]
     Active Substance: PROGESTERONE
     Indication: Hormone replacement therapy
     Dosage: STREN/VOLUM: 75 MG|FREQU: ONCE A DAY
  23. RELPAX [Concomitant]
     Active Substance: ELETRIPTAN HYDROBROMIDE
     Indication: Migraine
     Dosage: STREN/VOLUM: 40 MG|FREQU: AS NEEDED
  24. SODIUM CHLORIDE [Concomitant]
     Active Substance: SODIUM CHLORIDE
     Indication: Short-bowel syndrome
     Dosage: STREN/VOLUM: 1 INFUSION|FREQU: THREE TIMES A WEEK
  25. SODIUM CHLORIDE [Concomitant]
     Active Substance: SODIUM CHLORIDE
     Indication: Crohn^s disease
     Dosage: STREN/VOLUM: 1 INFUSION|FREQU: THREE TIMES A WEEK
  26. TESTOSTERONE [Concomitant]
     Active Substance: TESTOSTERONE
     Indication: Hormone replacement therapy
     Dosage: STREN/VOLUM: .75 MG|FREQU: ONCE A DAY
  27. TPN [Concomitant]
     Active Substance: AMINO ACIDS\DEXTROSE\ELECTROLYTES NOS\SOYBEAN OIL
     Indication: Nutritional supplementation
     Dosage: STREN/VOLUM: 1500 ML|FREQU: FOUR TIMES A WEEK OVER 12 HRS/DAY
  28. Venofer- iron infusion [Concomitant]
     Indication: Short-bowel syndrome
     Dosage: STREN/VOLUM: 1 INFUSION|FREQU: EVERY 4 WEEKS
  29. VITAMIN A [Concomitant]
     Active Substance: VITAMIN A
     Indication: Vitamin supplementation
     Dosage: STREN/VOLUM: 25,000 IU|FREQU: ONCE A DAY
  30. VITAMIN E [Concomitant]
     Active Substance: .ALPHA.-TOCOPHEROL
     Indication: Vitamin supplementation
     Dosage: STREN/VOLUM: 400 IU|FREQU: ONCE A DAY
  31. DENAVIR [Concomitant]
     Active Substance: PENCICLOVIR
     Indication: Oral herpes
     Dosage: FREQU: AS NEEDED
  32. PLAVIX [Concomitant]
     Active Substance: CLOPIDOGREL BISULFATE
  33. IMODIUM [Concomitant]
     Active Substance: LOPERAMIDE HYDROCHLORIDE
  34. CODEINE [Concomitant]
     Active Substance: CODEINE
  35. LOPERAMIDE [Concomitant]
     Active Substance: LOPERAMIDE
  36. VITAMINS [Concomitant]
     Active Substance: VITAMINS
  37. VITAMIN D [Concomitant]
     Active Substance: VITAMIN D NOS
  38. ESTROGENS [Concomitant]
     Active Substance: ESTROGENS

REACTIONS (13)
  - Macular degeneration [Unknown]
  - Oral herpes [Recovered/Resolved]
  - Feeling abnormal [Not Recovered/Not Resolved]
  - Influenza like illness [Not Recovered/Not Resolved]
  - Rhinorrhoea [Not Recovered/Not Resolved]
  - Diarrhoea [Recovered/Resolved]
  - Fatigue [Not Recovered/Not Resolved]
  - Nasopharyngitis [Not Recovered/Not Resolved]
  - Gastrointestinal pain [Not Recovered/Not Resolved]
  - Insomnia [Not Recovered/Not Resolved]
  - Abdominal distension [Recovered/Resolved]
  - Cough [Not Recovered/Not Resolved]
  - Headache [Not Recovered/Not Resolved]

NARRATIVE: CASE EVENT DATE: 20140301
